FAERS Safety Report 6267620-3 (Version None)
Quarter: 2009Q3

REPORT INFORMATION
  Report Type: 
  Country: None (occurrence: None)
  Receive Date: 20090710
  Receipt Date: 20090626
  Transmission Date: 20100115
  Serious: Yes (Death, Hospitalization)
  Sender: FDA-Public Use
  Company Number: 1000007272

PATIENT
  Age: 85 Year
  Sex: Female
  Weight: 83 kg

DRUGS (5)
  1. CELEXA [Suspect]
     Dosage: (10 MG)
  2. RISPERDAL [Suspect]
     Dosage: 6 MG (2 MG,3 IN 1 D), ORAL
     Route: 048
  3. HALDOL [Concomitant]
  4. LASIX [Concomitant]
  5. VANCOMYCIN [Concomitant]

REACTIONS (12)
  - ANXIETY [None]
  - CARDIAC FAILURE [None]
  - HYPOKINESIA [None]
  - MOVEMENT DISORDER [None]
  - MUSCLE RIGIDITY [None]
  - ORAL CANDIDIASIS [None]
  - OROPHARYNGEAL PAIN [None]
  - PNEUMONIA ASPIRATION [None]
  - RENAL FAILURE [None]
  - SPEECH DISORDER [None]
  - TONGUE DISORDER [None]
  - TONGUE PARALYSIS [None]
